FAERS Safety Report 10256653 (Version 1)
Quarter: 2014Q2

REPORT INFORMATION
  Report Type: Spontaneous
  Country: US (occurrence: US)
  Receive Date: 20140624
  Receipt Date: 20140624
  Transmission Date: 20141212
  Serious: No
  Sender: FDA-Public Use
  Company Number: US-TEVA-485208USA

PATIENT
  Sex: Female
  Weight: 56.75 kg

DRUGS (5)
  1. NUVIGIL [Suspect]
     Dosage: CUT IN HALF
     Route: 048
  2. BUSPAR [Concomitant]
  3. WELLBUTRIN [Concomitant]
  4. CLONAZEPAM [Concomitant]
  5. METHYLPHENIDATE HYDROCHLORIDE [Concomitant]

REACTIONS (2)
  - Hallucination [Unknown]
  - Irregular sleep phase [Unknown]
